FAERS Safety Report 13641533 (Version 2)
Quarter: 2017Q3

REPORT INFORMATION
  Report Type: Spontaneous
  Country: FR (occurrence: FR)
  Receive Date: 20170612
  Receipt Date: 20170705
  Transmission Date: 20171127
  Serious: Yes (Death, Hospitalization)
  Sender: FDA-Public Use
  Company Number: FR-JNJFOC-20170608185

PATIENT
  Sex: Male

DRUGS (1)
  1. ZYTIGA [Suspect]
     Active Substance: ABIRATERONE ACETATE
     Indication: PROSTATE CANCER
     Route: 048
     Dates: start: 20161123, end: 20170428

REACTIONS (2)
  - Hospitalisation [Unknown]
  - Prostate cancer [Fatal]
